FAERS Safety Report 19898206 (Version 6)
Quarter: 2022Q1

REPORT INFORMATION
  Report Type: Report from Study
  Country: US (occurrence: US)
  Receive Date: 20210930
  Receipt Date: 20220103
  Transmission Date: 20220423
  Serious: No
  Sender: FDA-Public Use
  Company Number: US-JNJFOC-20210938094

PATIENT
  Age: 5 Decade
  Sex: Male
  Weight: 127.12 kg

DRUGS (2)
  1. STELARA [Suspect]
     Active Substance: USTEKINUMAB
     Indication: Crohn^s disease
     Dosage: STRENGTH:90.00 MG/ML
     Route: 058
     Dates: start: 20210920
  2. STELARA [Suspect]
     Active Substance: USTEKINUMAB
     Dosage: STRENGTH: 45.00 MG / 0.50 ML?BEEN ON STELARA FOR ABOUT A YEAR
     Route: 058
     Dates: start: 2020

REACTIONS (4)
  - Inappropriate schedule of product administration [Unknown]
  - Needle issue [Unknown]
  - Off label use [Unknown]
  - Incorrect dose administered [Unknown]

NARRATIVE: CASE EVENT DATE: 20200101
